FAERS Safety Report 4862487-X (Version None)
Quarter: 2005Q4

REPORT INFORMATION
  Report Type: 
  Country: None (occurrence: None)
  Receive Date: 20051221
  Receipt Date: 20051212
  Transmission Date: 20060501
  Serious: Yes (Other)
  Sender: FDA-Public Use
  Company Number: 2005AC01950

PATIENT
  Age: 66 Year
  Sex: Male

DRUGS (4)
  1. BICALUTAMIDE [Suspect]
     Indication: PROSTATE CANCER
  2. BICALUTAMIDE [Suspect]
     Indication: METASTASES TO BONE
  3. LEUPROLIDE [Suspect]
     Indication: PROSTATE CANCER
  4. LEUPROLIDE [Suspect]
     Indication: METASTASES TO BONE

REACTIONS (2)
  - HYPERGLYCAEMIA [None]
  - INSULIN RESISTANCE [None]
